FAERS Safety Report 5083216-3 (Version None)
Quarter: 2006Q3

REPORT INFORMATION
  Report Type: 
  Country: None (occurrence: None)
  Receive Date: 20060816
  Receipt Date: 20060816
  Transmission Date: 20061208
  Serious: Yes (Life-Threatening, Hospitalization)
  Sender: FDA-Public Use
  Company Number: None

PATIENT
  Age: 57 Year
  Sex: Female

DRUGS (1)
  1. PHENDIMETRAZINE [Suspect]
     Dosage: 70 MG BID PO  OFF AND ON FOR 7 YEARS
     Route: 048
     Dates: start: 20060101, end: 20060801

REACTIONS (1)
  - CONGESTIVE CARDIOMYOPATHY [None]
